FAERS Safety Report 5325333-6 (Version None)
Quarter: 2007Q2

REPORT INFORMATION
  Report Type: 
  Country: None (occurrence: None)
  Receive Date: 20070509
  Receipt Date: 20070427
  Transmission Date: 20071010
  Serious: Yes (Other)
  Sender: FDA-Public Use
  Company Number: GXKR2007PL03891

PATIENT
  Age: 58 Year
  Sex: Female
  Weight: 65 kg

DRUGS (2)
  1. CLARITHROMYCIN [Suspect]
     Indication: PNEUMONIA
     Dosage: SEE IMAGE
     Route: 048
     Dates: start: 20070226, end: 20070305
  2. CLARITHROMYCIN [Suspect]
     Indication: PNEUMONIA
     Dosage: SEE IMAGE
     Route: 048
     Dates: start: 20070305, end: 20070320

REACTIONS (2)
  - DYSGEUSIA [None]
  - DYSPEPSIA [None]
